FAERS Safety Report 8287830-3 (Version None)
Quarter: 2012Q2

REPORT INFORMATION
  Report Type: 
  Country: None (occurrence: None)
  Receive Date: 20120416
  Receipt Date: 20120405
  Transmission Date: 20120825
  Serious: Yes (Other)
  Sender: FDA-Public Use
  Company Number: TR-ASTRAZENECA-2012SE22716

PATIENT
  Age: 29391 Day
  Sex: Male
  Weight: 75 kg

DRUGS (4)
  1. NEXIUM [Suspect]
     Indication: PROPHYLAXIS
     Route: 048
  2. CARVEDILOL [Concomitant]
  3. NORVASC [Concomitant]
  4. PLAVIX [Concomitant]

REACTIONS (3)
  - FATIGUE [None]
  - HERPES VIRUS INFECTION [None]
  - LISTLESS [None]
